FAERS Safety Report 4767184-7 (Version None)
Quarter: 2005Q3

REPORT INFORMATION
  Report Type: 
  Country: None (occurrence: None)
  Receive Date: 20050909
  Receipt Date: 20050830
  Transmission Date: 20060218
  Serious: Yes (Other)
  Sender: FDA-Public Use
  Company Number: 2005-08-2251

PATIENT
  Age: 55 Year
  Sex: Female

DRUGS (6)
  1. NASONEX [Suspect]
     Dosage: NASAL SPRAY
  2. ADVAIR (SALMETEROL/FLUTICASONE0 [Suspect]
  3. ALBUTEROL [Concomitant]
  4. CELEBREX [Concomitant]
  5. METHOTREXATE [Concomitant]
  6. ELIDEL [Concomitant]

REACTIONS (2)
  - AGEUSIA [None]
  - ANOSMIA [None]
